FAERS Safety Report 6715105-X (Version None)
Quarter: 2010Q2

REPORT INFORMATION
  Report Type: 
  Country: None (occurrence: None)
  Receive Date: 20100507
  Receipt Date: 20100427
  Transmission Date: 20101027
  Serious: Yes (Other)
  Sender: FDA-Public Use
  Company Number: US-PFIZER INC-2010015587

PATIENT
  Sex: Female
  Weight: 62.857 kg

DRUGS (7)
  1. SUTENT [Suspect]
     Indication: METASTATIC RENAL CELL CARCINOMA
     Dosage: 50 MG, 1X/DAY
     Route: 048
     Dates: start: 20091121
  2. ACETYLSALICYLIC ACID [Concomitant]
     Dosage: 81 MG, 1X/DAY
  3. GLIPIZIDE [Concomitant]
     Dosage: 5 MG, 2X/DAY
  4. VERAPAMIL [Concomitant]
     Dosage: 240 MG, 2X/DAY
     Route: 048
  5. LISINOPRIL AND HYDROCHLOROTHIAZIDE [Concomitant]
     Dosage: 40/25
  6. NORVASC [Concomitant]
     Dosage: 5 MG, 1X/DAY
  7. PERCOCET [Concomitant]
     Indication: PAIN
     Dosage: 5/325 MG

REACTIONS (4)
  - BLOOD PRESSURE INCREASED [None]
  - FACE OEDEMA [None]
  - LETHARGY [None]
  - YELLOW SKIN [None]
